FAERS Safety Report 20163712 (Version 7)
Quarter: 2022Q1

REPORT INFORMATION
  Report Type: Spontaneous
  Country: CA (occurrence: CA)
  Receive Date: 20211209
  Receipt Date: 20220108
  Transmission Date: 20220423
  Serious: Yes (Disabling, Other)
  Sender: FDA-Public Use
  Company Number: CA-SANOFI-00874497

PATIENT
  Age: 51 Year
  Sex: Male

DRUGS (4)
  1. APIDRA SOLOSTAR [Suspect]
     Active Substance: INSULIN GLULISINE
     Indication: Diabetes mellitus
     Dosage: 4 IU, PRN
     Route: 058
  2. APIDRA SOLOSTAR [Suspect]
     Active Substance: INSULIN GLULISINE
     Dosage: 15 IU, PRN
     Route: 065
  3. APIDRA SOLOSTAR [Suspect]
     Active Substance: INSULIN GLULISINE
     Dosage: 24 IU, QD
  4. APIDRA SOLOSTAR [Suspect]
     Active Substance: INSULIN GLULISINE
     Dosage: 35 IU, PRN
     Route: 065

REACTIONS (10)
  - Post-traumatic stress disorder [Unknown]
  - Diabetes mellitus inadequate control [Recovered/Resolved]
  - Drug ineffective [Unknown]
  - Palpitations [Unknown]
  - Frustration tolerance decreased [Unknown]
  - Urine output increased [Unknown]
  - Tremor [Unknown]
  - Chromaturia [Unknown]
  - Intentional product misuse [Unknown]
  - Product storage error [Unknown]
